FAERS Safety Report 4726169-7 (Version None)
Quarter: 2005Q3

REPORT INFORMATION
  Report Type: 
  Country: None (occurrence: None)
  Receive Date: 20050725
  Receipt Date: 20050711
  Transmission Date: 20060218
  Serious: Yes (Life-Threatening, Hospitalization)
  Sender: FDA-Public Use
  Company Number: DE-2005-010131

PATIENT
  Age: 67 Year
  Sex: Male
  Weight: 70 kg

DRUGS (7)
  1. MAGNEVIST [Suspect]
     Indication: VENOGRAM
     Dosage: 30 ML, 1 DOSE, INTRAVENOUS
     Route: 042
     Dates: start: 20041119, end: 20041119
  2. ERYTHROPOIETIN HUMAN [Concomitant]
  3. CALCIUM ACETATE [Concomitant]
  4. DYNACIL (FOSINOPRIL SODIUM) [Concomitant]
  5. APO-METOPROLOL [Concomitant]
  6. FALITHROM (PHENPROCOUMON) [Concomitant]
  7. OMEPRAZOLE [Concomitant]

REACTIONS (6)
  - CARDIAC FAILURE CONGESTIVE [None]
  - CHEST PAIN [None]
  - CHILLS [None]
  - DYSPNOEA [None]
  - LUNG DISORDER [None]
  - PYREXIA [None]
